FAERS Safety Report 9654278 (Version 2)
Quarter: 2014Q3

REPORT INFORMATION
  Report Type: Spontaneous
  Country: US (occurrence: US)
  Receive Date: 20131029
  Receipt Date: 20140730
  Transmission Date: 20150326
  Serious: Yes (Hospitalization, Other)
  Sender: FDA-Public Use
  Company Number: US-009507513-1310USA013312

PATIENT
  Sex: Female

DRUGS (2)
  1. NUVARING [Suspect]
     Active Substance: ETHINYL ESTRADIOL\ETONOGESTREL
     Indication: CONTRACEPTION
     Dosage: UNK
     Route: 067
     Dates: start: 201103, end: 201110
  2. NUVARING [Suspect]
     Active Substance: ETHINYL ESTRADIOL\ETONOGESTREL
     Indication: MENOPAUSAL SYMPTOMS

REACTIONS (10)
  - Headache [Unknown]
  - Supraventricular tachycardia [Unknown]
  - Asthma [Unknown]
  - Vaginal haemorrhage [Unknown]
  - Pain in extremity [Unknown]
  - Off label use [Unknown]
  - Pulmonary embolism [Unknown]
  - Gastrooesophageal reflux disease [Unknown]
  - Hyperlipidaemia [Unknown]
  - Bipolar disorder [Unknown]

NARRATIVE: CASE EVENT DATE: 201110
